FAERS Safety Report 6436930-9 (Version None)
Quarter: 2009Q4

REPORT INFORMATION
  Report Type: 
  Country: None (occurrence: None)
  Receive Date: 20091109
  Receipt Date: 20091028
  Transmission Date: 20100525
  Serious: Yes (Other)
  Sender: FDA-Public Use
  Company Number: 2009GR_BP3369

PATIENT
  Age: 17 Year
  Sex: Male

DRUGS (1)
  1. TERBINAFINE HCL [Suspect]
     Dosage: 250 MG ORAL
     Route: 048
     Dates: start: 20090903, end: 20090918

REACTIONS (1)
  - ANXIETY [None]
